FAERS Safety Report 8459407-8 (Version None)
Quarter: 2012Q2

REPORT INFORMATION
  Report Type: 
  Country: None (occurrence: None)
  Receive Date: 20120622
  Receipt Date: 20120613
  Transmission Date: 20120825
  Serious: Yes (Hospitalization)
  Sender: FDA-Public Use
  Company Number: DE-JNJFOC-20120606151

PATIENT
  Age: 52 Year
  Sex: Male

DRUGS (3)
  1. PALIPERIDONE [Suspect]
     Route: 030
     Dates: start: 20120228
  2. PALIPERIDONE [Suspect]
     Indication: PRODUCT USED FOR UNKNOWN INDICATION
     Route: 030
     Dates: start: 20120124, end: 20120124
  3. PALIPERIDONE [Suspect]
     Route: 030
     Dates: start: 20120131, end: 20120131

REACTIONS (2)
  - INJECTION SITE INDURATION [None]
  - PAIN [None]
